FAERS Safety Report 6628622-8 (Version None)
Quarter: 2010Q1

REPORT INFORMATION
  Report Type: 
  Country: None (occurrence: None)
  Receive Date: 20100310
  Receipt Date: 20100310
  Transmission Date: 20100710
  Serious: Yes (Life-Threatening, Hospitalization, Other)
  Sender: FDA-Public Use
  Company Number: None

PATIENT
  Age: 76 Year
  Sex: Male
  Weight: 72.5755 kg

DRUGS (1)
  1. WELCHOL [Suspect]
     Indication: BLOOD CHOLESTEROL
     Dosage: 3 TABLETS TWICE A DAY PO
     Route: 048
     Dates: start: 20100306, end: 20100308

REACTIONS (9)
  - BLOOD PRESSURE FLUCTUATION [None]
  - CARDIAC DISORDER [None]
  - CONFUSIONAL STATE [None]
  - DIZZINESS [None]
  - HEADACHE [None]
  - HYPERTENSION [None]
  - MEDICATION ERROR [None]
  - PALPITATIONS [None]
  - SYNCOPE [None]
